FAERS Safety Report 6993513-X (Version None)
Quarter: 2010Q3

REPORT INFORMATION
  Report Type: 
  Country: None (occurrence: None)
  Receive Date: 20100917
  Receipt Date: 20100616
  Transmission Date: 20110219
  Serious: No
  Sender: FDA-Public Use
  Company Number: US-ASTRAZENECA-2010SE28153

PATIENT
  Age: 17306 Day
  Sex: Male
  Weight: 100.2 kg

DRUGS (2)
  1. SEROQUEL [Suspect]
     Indication: BIPOLAR DISORDER
     Route: 048
     Dates: start: 20050101, end: 20100611
  2. WELLBUTRIN [Concomitant]

REACTIONS (6)
  - DRUG DOSE OMISSION [None]
  - HALLUCINATION, AUDITORY [None]
  - INSOMNIA [None]
  - PARANOIA [None]
  - TREMOR [None]
  - VOMITING [None]
